FAERS Safety Report 6357371-9 (Version None)
Quarter: 2009Q3

REPORT INFORMATION
  Report Type: 
  Country: None (occurrence: None)
  Receive Date: 20090916
  Receipt Date: 20090902
  Transmission Date: 20100115
  Serious: Yes (Other)
  Sender: FDA-Public Use
  Company Number: GB-RANBAXY-2009RR-27381

PATIENT
  Age: 59 Year
  Sex: Female

DRUGS (8)
  1. FLUOXETINE [Suspect]
     Indication: DEPRESSION
     Dosage: 120 MG, UNK
     Route: 048
     Dates: start: 20080701
  2. FEXOFENADINE [Concomitant]
  3. HYPROMELLOSE [Concomitant]
  4. LANSOPRAZOLE [Concomitant]
  5. LEVOTHYROXINE SODIUM [Concomitant]
  6. MEBEVERINE HYDROCHLORIDE [Concomitant]
  7. SUMATRIPTAN SUCCINATE [Concomitant]
  8. VISCOTEARS [Concomitant]

REACTIONS (3)
  - DRUG DISPENSING ERROR [None]
  - MEMORY IMPAIRMENT [None]
  - TREMOR [None]
